FAERS Safety Report 4399646-9 (Version None)
Quarter: 2004Q3

REPORT INFORMATION
  Report Type: 
  Country: None (occurrence: None)
  Receive Date: 20040713
  Receipt Date: 20040701
  Transmission Date: 20050211
  Serious: Yes (Death, Life-Threatening, Hospitalization, Disabling)
  Sender: FDA-Public Use
  Company Number: AT-JNJFOC-20040600020

PATIENT
  Age: 58 Year
  Sex: Male
  Weight: 64 kg

DRUGS (11)
  1. REMICADE [Suspect]
     Dosage: 100 MG, 3 IN 1 DAY, INTRAVENOUS
     Route: 042
     Dates: start: 20030613, end: 20030627
  2. OMEPRAZOLE [Concomitant]
  3. WARFARIN (WARFARIN) TABLETS [Concomitant]
  4. AMITRIPTYLIN (AMITRIPTYLINE) [Concomitant]
  5. GABAPENTIN [Concomitant]
  6. DEXIBUPROFEN (DEXIBUPROFEN) [Concomitant]
  7. PREDNISOLONE [Concomitant]
  8. TRAMADOL (TRAMADOL HYDROCHLORIDDE)TABLETS [Concomitant]
  9. BACTRIL (BACTRICIN) [Concomitant]
  10. NEOMYCIN [Concomitant]
  11. FENTANYL [Concomitant]

REACTIONS (8)
  - ACUTE RESPIRATORY DISTRESS SYNDROME [None]
  - C-REACTIVE PROTEIN INCREASED [None]
  - HEPATIC FAILURE [None]
  - IMMUNODEFICIENCY [None]
  - MULTI-ORGAN FAILURE [None]
  - PLEURAL EFFUSION [None]
  - PNEUMONIA LEGIONELLA [None]
  - RENAL FAILURE [None]
